FAERS Safety Report 11245595 (Version 1)
Quarter: 2015Q3

REPORT INFORMATION
  Report Type: Spontaneous
  Country: US (occurrence: US)
  Receive Date: 20150707
  Receipt Date: 20150707
  Transmission Date: 20151125
  Serious: Yes (Other)
  Sender: FDA-Public Use
  Company Number: US-B.I. PHARMACEUTICALS,INC./RIDGEFIELD-2015-BI-36537BP

PATIENT
  Sex: Female

DRUGS (2)
  1. PRADAXA [Suspect]
     Active Substance: DABIGATRAN ETEXILATE MESYLATE
     Indication: ATRIAL FIBRILLATION
     Dosage: 300 MG
     Route: 048
     Dates: start: 2013
  2. POTASSIUM [Concomitant]
     Active Substance: POTASSIUM
     Indication: SUPPLEMENTATION THERAPY
     Dosage: FORMULATION: CAPLET
     Route: 048

REACTIONS (3)
  - Dyspnoea [Recovered/Resolved]
  - Atrial fibrillation [Recovered/Resolved]
  - Contusion [Not Recovered/Not Resolved]

NARRATIVE: CASE EVENT DATE: 2013
